FAERS Safety Report 4976419-7 (Version None)
Quarter: 2006Q2

REPORT INFORMATION
  Report Type: 
  Country: None (occurrence: None)
  Receive Date: 20060412
  Receipt Date: 20060330
  Transmission Date: 20061013
  Serious: Yes (Other)
  Sender: FDA-Public Use
  Company Number: 2006044874

PATIENT
  Age: 75 Year
  Sex: Male
  Weight: 92.9874 kg

DRUGS (1)
  1. GABAPENTIN [Suspect]
     Indication: NEUROPATHY PERIPHERAL
     Dates: start: 20030101, end: 20030101

REACTIONS (2)
  - ABASIA [None]
  - MOVEMENT DISORDER [None]
